FAERS Safety Report 4563699-5 (Version None)
Quarter: 2005Q1

REPORT INFORMATION
  Report Type: 
  Country: None (occurrence: None)
  Receive Date: 20050125
  Receipt Date: 20041203
  Transmission Date: 20050727
  Serious: Yes (Hospitalization)
  Sender: FDA-Public Use
  Company Number: EMR64300001-18

PATIENT
  Age: 58 Year
  Sex: Male

DRUGS (4)
  1. NIASPAN [Suspect]
     Indication: DYSLIPIDAEMIA
     Dosage: 2000 MG QD PO
     Route: 048
     Dates: start: 20041013, end: 20041109
  2. PRAVASTATIN [Concomitant]
  3. BETA-BLOCKER [Concomitant]
  4. CA-ANTAGONIC [Concomitant]

REACTIONS (1)
  - GASTROINTESTINAL PAIN [None]
